FAERS Safety Report 23607452 (Version 1)
Quarter: 2024Q1

REPORT INFORMATION
  Report Type: Report from Study
  Country: CA (occurrence: CA)
  Receive Date: 20240307
  Receipt Date: 20240307
  Transmission Date: 20240409
  Serious: Yes (Life-Threatening, Hospitalization, Other)
  Sender: FDA-Public Use
  Company Number: CA-GILEAD-2024-0657112

PATIENT
  Age: 45 Year
  Sex: Male
  Weight: 77.9 kg

DRUGS (3)
  1. BICTEGRAVIR\EMTRICITABINE\TENOFOVIR ALAFENAMIDE [Suspect]
     Active Substance: BICTEGRAVIR\EMTRICITABINE\TENOFOVIR ALAFENAMIDE
     Indication: HIV infection
     Dosage: UNK
     Route: 065
  2. SEPTRA DS [Concomitant]
     Active Substance: SULFAMETHOXAZOLE\TRIMETHOPRIM
     Indication: Acquired immunodeficiency syndrome
     Dosage: 1 DOSAGE FORM
     Route: 048
     Dates: start: 20230824
  3. PREGABALIN [Concomitant]
     Active Substance: PREGABALIN
     Indication: Pain
     Dosage: 50 MG
     Route: 048
     Dates: start: 20230824

REACTIONS (2)
  - B-cell lymphoma [Not Recovered/Not Resolved]
  - Cardiac tamponade [Unknown]

NARRATIVE: CASE EVENT DATE: 20230901
